FAERS Safety Report 5066232-7 (Version None)
Quarter: 2006Q3

REPORT INFORMATION
  Report Type: 
  Country: None (occurrence: None)
  Receive Date: 20060728
  Receipt Date: 20060719
  Transmission Date: 20061208
  Serious: Yes (Hospitalization)
  Sender: FDA-Public Use
  Company Number: 2006BI005543

PATIENT
  Age: 57 Year
  Sex: Male

DRUGS (8)
  1. AVONEX [Suspect]
     Indication: MULTIPLE SCLEROSIS
     Dosage: IM
     Route: 030
  2. GABAPENTIN [Concomitant]
  3. PROVIGIL [Concomitant]
  4. TIZANIDINE HCL [Concomitant]
  5. CIPROFLOXACIN [Concomitant]
  6. GLIPIZIDE ER [Concomitant]
  7. METFORMIN HCL [Concomitant]
  8. FAMOTIDINE [Concomitant]

REACTIONS (3)
  - COORDINATION ABNORMAL [None]
  - GASTROENTERITIS VIRAL [None]
  - INFLUENZA [None]
